FAERS Safety Report 21942033 (Version 1)
Quarter: 2023Q1

REPORT INFORMATION
  Report Type: Report from Study
  Country: US (occurrence: US)
  Receive Date: 20230202
  Receipt Date: 20230202
  Transmission Date: 20230418
  Serious: No
  Sender: FDA-Public Use
  Company Number: US-EXELIXIS-CABO-22056102

PATIENT
  Sex: Male
  Weight: 96.685 kg

DRUGS (2)
  1. CABOMETYX [Suspect]
     Active Substance: CABOZANTINIB S-MALATE
     Indication: Hepatic cancer
     Dosage: 40 MG, QD
     Route: 048
     Dates: start: 20220804
  2. CABOMETYX [Suspect]
     Active Substance: CABOZANTINIB S-MALATE
     Dosage: UNK
     Route: 048

REACTIONS (17)
  - Hepatic pain [Recovering/Resolving]
  - Blister [Recovering/Resolving]
  - Skin burning sensation [Recovering/Resolving]
  - Pulmonary pain [Recovering/Resolving]
  - Sleep disorder [Recovering/Resolving]
  - Eating disorder [Recovering/Resolving]
  - Cachexia [Recovering/Resolving]
  - Thyroid hormones increased [Unknown]
  - White blood cell count increased [Recovering/Resolving]
  - Memory impairment [Unknown]
  - Paraesthesia [Unknown]
  - Hypoaesthesia [Unknown]
  - Skin exfoliation [Unknown]
  - Sensitive skin [Unknown]
  - Abdominal pain [Recovering/Resolving]
  - Cough [Recovering/Resolving]
  - Weight decreased [Recovering/Resolving]
